FAERS Safety Report 20778349 (Version 1)
Quarter: 2022Q2

REPORT INFORMATION
  Report Type: Spontaneous
  Country: FR (occurrence: FR)
  Receive Date: 20220503
  Receipt Date: 20220503
  Transmission Date: 20220721
  Serious: Yes (Death, Life-Threatening, Other)
  Sender: FDA-Public Use
  Company Number: FR-AGEPS-2022000008

PATIENT
  Age: 74 Year
  Sex: Male

DRUGS (13)
  1. AZITHROMYCIN [Suspect]
     Active Substance: AZITHROMYCIN
     Indication: COVID-19
     Dosage: UNK
     Route: 065
     Dates: start: 202010, end: 20201027
  2. METHYLPREDNISOLONE [Suspect]
     Active Substance: METHYLPREDNISOLONE
     Indication: Hypoxia
     Dosage: 120 MG, SINGLE
     Route: 065
  3. DEXAMETHASONE [Suspect]
     Active Substance: DEXAMETHASONE
     Indication: COVID-19
     Dosage: 6 MG, 1X/DAY
     Dates: start: 20201023, end: 20201030
  4. DEXAMETHASONE [Suspect]
     Active Substance: DEXAMETHASONE
     Dosage: 10 MG, 2X/DAY
     Dates: start: 20201031
  5. AMIKACIN [Concomitant]
     Active Substance: AMIKACIN
     Indication: Pneumonia pseudomonal
     Dosage: UNK
     Route: 065
     Dates: start: 20201109
  6. ENOXAPARIN SODIUM [Concomitant]
     Active Substance: ENOXAPARIN SODIUM
     Indication: Anticoagulant therapy
     Dosage: 1.6 ML, 1X/DAY
     Route: 058
     Dates: start: 202010
  7. PIPERACILLIN SODIUM\TAZOBACTAM SODIUM [Concomitant]
     Active Substance: PIPERACILLIN SODIUM\TAZOBACTAM SODIUM
     Dosage: UNK
     Route: 065
     Dates: start: 20201031
  8. ACYCLOVIR [Concomitant]
     Active Substance: ACYCLOVIR
     Dosage: UNK
     Route: 065
     Dates: start: 20201110
  9. SULFAMETHOXAZOLE\TRIMETHOPRIM [Concomitant]
     Active Substance: SULFAMETHOXAZOLE\TRIMETHOPRIM
     Indication: Pneumonia pseudomonal
     Dosage: 800 MG, 2X/DAY
     Route: 065
     Dates: start: 20201109
  10. CEFTRIAXONE [Concomitant]
     Active Substance: CEFTRIAXONE
     Indication: COVID-19
     Dosage: UNK
     Route: 065
     Dates: start: 202010, end: 20201027
  11. CEFEPIME [Concomitant]
     Active Substance: CEFEPIME HYDROCHLORIDE
     Indication: Pneumonia pseudomonal
     Dosage: UNK
     Route: 065
     Dates: start: 20201109
  12. CEFTAZIDIME [Concomitant]
     Active Substance: CEFTAZIDIME
     Indication: Pseudomonas infection
     Dosage: UNK
     Route: 065
     Dates: start: 20201104
  13. HEPARIN [Concomitant]
     Active Substance: HEPARIN SODIUM
     Dosage: UNK
     Route: 065
     Dates: start: 20201104

REACTIONS (3)
  - Aspergillus infection [Fatal]
  - Mucormycosis [Fatal]
  - Off label use [Unknown]

NARRATIVE: CASE EVENT DATE: 20201001
